FAERS Safety Report 14666311 (Version 1)
Quarter: 2018Q1

REPORT INFORMATION
  Report Type: Spontaneous
  Country: US (occurrence: US)
  Receive Date: 20180321
  Receipt Date: 20180321
  Transmission Date: 20180509
  Serious: No
  Sender: FDA-Public Use
  Company Number: US-MYLANLABS-2018M1014158

PATIENT
  Sex: Female
  Weight: 66 kg

DRUGS (1)
  1. FENTANYL TRANSDERMAL SYSTEM [Suspect]
     Active Substance: FENTANYL
     Indication: PAIN
     Dosage: 1 DF, (3 DAYS) 50MCG/DAY
     Route: 062

REACTIONS (3)
  - Product adhesion issue [Unknown]
  - Wrong technique in product usage process [Not Recovered/Not Resolved]
  - Application site pain [Recovered/Resolved]
